FAERS Safety Report 8313002-X (Version None)
Quarter: 2012Q2

REPORT INFORMATION
  Report Type: 
  Country: None (occurrence: None)
  Receive Date: 20120424
  Receipt Date: 20120412
  Transmission Date: 20120825
  Serious: Yes (Hospitalization)
  Sender: FDA-Public Use
  Company Number: 1259887

PATIENT
  Age: 74 Year
  Sex: Male

DRUGS (7)
  1. ASPIRIN [Concomitant]
  2. AMLODIPINE BESYLATE [Concomitant]
  3. COVERSYL /00790702/ [Concomitant]
  4. EZETIMIBE [Concomitant]
  5. GEMCITABINE [Suspect]
     Indication: PRODUCT USED FOR UNKNOWN INDICATION
     Dosage: 280 MILLIGRAM(S) (1 WEEK), INTRAVENOUS  (NOT OTHERWISE SPECIFIED)
     Route: 042
     Dates: start: 20120106, end: 20120113
  6. DOCETAXEL [Suspect]
     Indication: PRODUCT USED FOR UNKNOWN INDICATION
     Dosage: 147 MG, 1 IN 1 SINGLE DOSE, INTRAVENOUS (NOT OTHERWISE SPECIFIED)
     Route: 042
     Dates: start: 20120113, end: 20120113
  7. NEXIUM [Concomitant]

REACTIONS (13)
  - TOXICITY TO VARIOUS AGENTS [None]
  - INFLUENZA LIKE ILLNESS [None]
  - MUCOSAL INFLAMMATION [None]
  - HYPOTHERMIA [None]
  - ALTERED STATE OF CONSCIOUSNESS [None]
  - DRUG RASH WITH EOSINOPHILIA AND SYSTEMIC SYMPTOMS [None]
  - APLASIA [None]
  - HYPOTENSION [None]
  - DIARRHOEA [None]
  - PANCYTOPENIA [None]
  - CYTOLYTIC HEPATITIS [None]
  - RENAL FAILURE ACUTE [None]
  - ENTEROBACTER TEST POSITIVE [None]
